FAERS Safety Report 5511497-8 (Version None)
Quarter: 2007Q4

REPORT INFORMATION
  Report Type: 
  Country: None (occurrence: None)
  Receive Date: 20071109
  Receipt Date: 20071106
  Transmission Date: 20080405
  Serious: Yes (Life-Threatening, Hospitalization, Other)
  Sender: FDA-Public Use
  Company Number: A0693642A

PATIENT
  Age: 65 Year
  Sex: Female
  Weight: 60 kg

DRUGS (5)
  1. SERETIDE [Suspect]
     Indication: ASTHMA
     Route: 055
     Dates: start: 19950101
  2. CIPROFLOXACIN [Concomitant]
  3. HYDROCHLOROTHIAZIDE [Concomitant]
  4. CAPTOPRIL [Concomitant]
     Dates: start: 19870101
  5. HYGROTON [Concomitant]
     Dates: start: 19870101

REACTIONS (11)
  - ASTHMA [None]
  - BREATH SOUNDS [None]
  - BRONCHOSPASM [None]
  - CYANOSIS [None]
  - DRUG INEFFECTIVE [None]
  - DYSPNOEA [None]
  - HYPERTENSION [None]
  - LEUKOCYTOSIS [None]
  - OXYGEN SATURATION DECREASED [None]
  - RALES [None]
  - TACHYCARDIA [None]
